FAERS Safety Report 8552284-6 (Version None)
Quarter: 2012Q3

REPORT INFORMATION
  Report Type: 
  Country: None (occurrence: None)
  Receive Date: 20120718
  Receipt Date: 20120704
  Transmission Date: 20120928
  Serious: Yes (Hospitalization)
  Sender: FDA-Public Use
  Company Number: 1341930

PATIENT
  Age: 57 Year
  Sex: Female

DRUGS (1)
  1. CARBOPLATIN [Suspect]
     Indication: UTERINE CANCER
     Dates: start: 20100503

REACTIONS (3)
  - MYOCLONUS [None]
  - PAIN [None]
  - QUALITY OF LIFE DECREASED [None]
